FAERS Safety Report 5297189-1 (Version None)
Quarter: 2007Q2

REPORT INFORMATION
  Report Type: 
  Country: None (occurrence: None)
  Receive Date: 20070414
  Receipt Date: 20070405
  Transmission Date: 20071010
  Serious: Yes (Hospitalization)
  Sender: FDA-Public Use
  Company Number: FR-ABBOTT-07P-056-0362024-00

PATIENT
  Age: 27 Year
  Sex: Female
  Weight: 100.3 kg

DRUGS (6)
  1. SIBUTRAL [Suspect]
     Indication: DRUG USE FOR UNKNOWN INDICATION
     Route: 048
     Dates: start: 20070110, end: 20070212
  2. BENFLUOREX HYDROCHLORIDE [Suspect]
     Indication: OBESITY
     Route: 048
     Dates: start: 20070130, end: 20070212
  3. SPASFON [Suspect]
     Indication: MENSTRUAL DISORDER
     Route: 048
     Dates: start: 20070212
  4. OMEPRAZOLE [Concomitant]
     Indication: GASTRITIS
     Dates: start: 20040101
  5. ETHINYL ESTRADIOL W/NORGESTREL [Concomitant]
     Indication: DRUG USE FOR UNKNOWN INDICATION
     Dates: end: 20070114
  6. METFORMIN HCL [Concomitant]
     Indication: DRUG USE FOR UNKNOWN INDICATION
     Dates: end: 20070130

REACTIONS (16)
  - ANGIOEDEMA [None]
  - BLOOD CORTICOTROPHIN INCREASED [None]
  - BLOOD PRESSURE DECREASED [None]
  - BODY TEMPERATURE [None]
  - CYTOLYTIC HEPATITIS [None]
  - FACE OEDEMA [None]
  - GLUCOSE TOLERANCE IMPAIRED [None]
  - LOSS OF CONSCIOUSNESS [None]
  - MALAISE [None]
  - ODYNOPHAGIA [None]
  - OEDEMA PERIPHERAL [None]
  - RASH [None]
  - RASH MACULO-PAPULAR [None]
  - RASH PRURITIC [None]
  - TONGUE OEDEMA [None]
  - URTICARIA [None]
